FAERS Safety Report 10183783 (Version 2)
Quarter: 2014Q3

REPORT INFORMATION
  Report Type: Spontaneous
  Country: US (occurrence: US)
  Receive Date: 20140520
  Receipt Date: 20140723
  Transmission Date: 20150326
  Serious: Yes (Hospitalization)
  Sender: FDA-Public Use
  Company Number: US-BAYER-2014-074805

PATIENT
  Age: 31 Year
  Sex: Female
  Weight: 83.9 kg

DRUGS (3)
  1. MIRENA [Suspect]
     Active Substance: LEVONORGESTREL
     Indication: CONTRACEPTION
     Dosage: 20 MCG/24HR, CONT
     Route: 015
     Dates: start: 20091224, end: 20130913
  2. CLINDAMYCIN [Concomitant]
     Active Substance: CLINDAMYCIN\CLINDAMYCIN PHOSPHATE
  3. FLUOXETINE [Concomitant]
     Active Substance: FLUOXETINE\FLUOXETINE HYDROCHLORIDE

REACTIONS (12)
  - Pain [None]
  - Emotional distress [None]
  - Device issue [None]
  - Malaise [None]
  - Device dislocation [None]
  - Injury [None]
  - Device defective [None]
  - Medical device discomfort [None]
  - General physical health deterioration [None]
  - Uterine perforation [None]
  - Procedural pain [None]
  - Abdominal pain [None]

NARRATIVE: CASE EVENT DATE: 201210
